FAERS Safety Report 19757874 (Version 1)
Quarter: 2021Q3

REPORT INFORMATION
  Report Type: Report from Study
  Country: None (occurrence: US)
  Receive Date: 20210828
  Receipt Date: 20210828
  Transmission Date: 20211014
  Serious: Yes (Other)
  Sender: FDA-Public Use
  Company Number: US-ABBVIE-21K-163-4055916-00

PATIENT
  Age: 29 Year
  Sex: Male

DRUGS (1)
  1. HUMIRA [Suspect]
     Active Substance: ADALIMUMAB
     Indication: COLITIS ULCERATIVE
     Dosage: CITRATE FREE
     Route: 058

REACTIONS (3)
  - Suicide attempt [Unknown]
  - Weight decreased [Unknown]
  - Hypophagia [Unknown]

NARRATIVE: CASE EVENT DATE: 202103
